FAERS Safety Report 6372785-9 (Version None)
Quarter: 2009Q3

REPORT INFORMATION
  Report Type: 
  Country: None (occurrence: None)
  Receive Date: 20090924
  Receipt Date: 20081114
  Transmission Date: 20100115
  Serious: No
  Sender: FDA-Public Use
  Company Number: US-ASTRAZENECA-2008UW25601

PATIENT
  Age: 51 Year
  Sex: Female
  Weight: 37.6 kg

DRUGS (2)
  1. SEROQUEL [Suspect]
     Dosage: UNKNOWN
     Route: 048
     Dates: start: 20081110
  2. CELEXA [Concomitant]

REACTIONS (4)
  - FATIGUE [None]
  - MUSCLE SPASMS [None]
  - OROMANDIBULAR DYSTONIA [None]
  - PANIC ATTACK [None]
